FAERS Safety Report 10177094 (Version 1)
Quarter: 2014Q2

REPORT INFORMATION
  Report Type: Spontaneous
  Country: US (occurrence: None)
  Receive Date: 20140515
  Receipt Date: 20140515
  Transmission Date: 20141212
  Serious: No
  Sender: FDA-Public Use
  Company Number: None

PATIENT
  Age: 56 Year
  Sex: Male

DRUGS (4)
  1. SERMORELINE ACETATE [Suspect]
     Dates: start: 201403, end: 201405
  2. TESTOSTERONE CYPIONATE [Suspect]
     Dosage: 10 ML VIAL:  OIL SUSPENSION 200MG/ML
  3. ANASTRAZOLE [Suspect]
  4. B-12 CYANOCOBALAMIN [Suspect]
     Dosage: 30ML VIAL: WATER SUSPENSION 1000MCG/ML

REACTIONS (8)
  - Drug ineffective [None]
  - Weight increased [None]
  - Fatigue [None]
  - Insomnia [None]
  - Arthralgia [None]
  - Constipation [None]
  - Fluid retention [None]
  - Product contamination physical [None]
